FAERS Safety Report 10089862 (Version 2)
Quarter: 2014Q2

REPORT INFORMATION
  Report Type: Report from Study
  Country: US (occurrence: US)
  Receive Date: 20140421
  Receipt Date: 20140421
  Transmission Date: 20141212
  Serious: No
  Sender: FDA-Public Use
  Company Number: US-ABBVIE-12P-163-1024266-00

PATIENT
  Age: 9 Year
  Sex: Female

DRUGS (1)
  1. LUPRON DEPOT-PED (3 MONTH) [Suspect]
     Indication: PRECOCIOUS PUBERTY
     Route: 030
     Dates: start: 201209, end: 201303

REACTIONS (7)
  - Injection site haematoma [Recovering/Resolving]
  - Injection site haematoma [Unknown]
  - Drug ineffective [Not Recovered/Not Resolved]
  - Injection site abscess sterile [Recovered/Resolved]
  - Gait disturbance [Unknown]
  - Device use error [Not Recovered/Not Resolved]
  - Drug administration error [Not Recovered/Not Resolved]
